FAERS Safety Report 11182679 (Version 2)
Quarter: 2016Q3

REPORT INFORMATION
  Report Type: Spontaneous
  Country: US (occurrence: US)
  Receive Date: 20150611
  Receipt Date: 20160920
  Transmission Date: 20161109
  Serious: No
  Sender: FDA-Public Use
  Company Number: US-PFIZER INC-2015195125

PATIENT
  Age: 64 Year
  Sex: Male
  Weight: 106.6 kg

DRUGS (3)
  1. LYRICA [Suspect]
     Active Substance: PREGABALIN
     Indication: ARTHRITIS
     Dosage: 200 MG, 3X/DAY
  2. LYRICA [Suspect]
     Active Substance: PREGABALIN
     Indication: BACK PAIN
     Dosage: 200 MG, 2X/DAY
  3. LYRICA [Suspect]
     Active Substance: PREGABALIN
     Dosage: 300 MG, UNK, (2 TO 3 TIMES A DAY)
     Route: 048
     Dates: end: 2016

REACTIONS (6)
  - Arthralgia [Unknown]
  - Overdose [Unknown]
  - Pain [Not Recovered/Not Resolved]
  - Back pain [Unknown]
  - Condition aggravated [Not Recovered/Not Resolved]
  - Drug ineffective [Unknown]

NARRATIVE: CASE EVENT DATE: 201603
